FAERS Safety Report 25073804 (Version 1)
Quarter: 2025Q1

REPORT INFORMATION
  Report Type: Spontaneous
  Country: GB (occurrence: GB)
  Receive Date: 20250313
  Receipt Date: 20250313
  Transmission Date: 20250408
  Serious: Yes (Other)
  Sender: AUROBINDO
  Company Number: GB-MHRA-MED-202502261021079420-QJPGN

PATIENT
  Age: 72 Year
  Sex: Male
  Weight: 74 kg

DRUGS (2)
  1. CIPROFLOXACIN [Suspect]
     Active Substance: CIPROFLOXACIN
     Indication: Prostatomegaly
     Dosage: 500 MILLIGRAM, TWO TIMES A DAY (500MG TWICE A DAY)
     Route: 065
     Dates: start: 20250223, end: 20250225
  2. BENDROFLUMETHIAZIDE [Concomitant]
     Active Substance: BENDROFLUMETHIAZIDE
     Indication: Hypertension
     Route: 065
     Dates: start: 20160701

REACTIONS (3)
  - Neuralgia [Recovered/Resolved]
  - Pain in extremity [Recovered/Resolved]
  - Tendon pain [Recovered/Resolved]

NARRATIVE: CASE EVENT DATE: 20250224
